FAERS Safety Report 7863713-5 (Version None)
Quarter: 2011Q4

REPORT INFORMATION
  Report Type: 
  Country: None (occurrence: None)
  Receive Date: 20111027
  Receipt Date: 20101208
  Transmission Date: 20120403
  Serious: No
  Sender: FDA-Public Use
  Company Number: US-AMGEN-USASP2010008396

PATIENT
  Age: 32 Year
  Sex: Female

DRUGS (1)
  1. ENBREL [Suspect]
     Indication: RHEUMATOID ARTHRITIS
     Dates: start: 20080613

REACTIONS (14)
  - VOMITING [None]
  - THERAPEUTIC RESPONSE DECREASED [None]
  - OROPHARYNGEAL PAIN [None]
  - RASH [None]
  - RHEUMATOID ARTHRITIS [None]
  - CONFUSIONAL STATE [None]
  - CONTUSION [None]
  - LYMPHADENOPATHY [None]
  - SKIN FISSURES [None]
  - INJECTION SITE PAIN [None]
  - SKIN INFECTION [None]
  - SKIN ATROPHY [None]
  - NASOPHARYNGITIS [None]
  - VULVOVAGINAL INJURY [None]
